FAERS Safety Report 4943011-X (Version None)
Quarter: 2006Q1

REPORT INFORMATION
  Report Type: 
  Country: None (occurrence: None)
  Receive Date: 20060314
  Receipt Date: 20040611
  Transmission Date: 20060701
  Serious: Yes (Life-Threatening)
  Sender: FDA-Public Use
  Company Number: NL-SANOFI-SYNTHELABO-D01200402

PATIENT
  Age: 70 Year
  Sex: Male
  Weight: 103 kg

DRUGS (8)
  1. FONDAPARINUX [Suspect]
     Indication: ACUTE CORONARY SYNDROME
     Dosage: 2.5MG PER DAY
     Route: 058
     Dates: start: 20040603
  2. AGGRASTAT [Concomitant]
  3. ASCAL [Concomitant]
  4. ENOXAPARIN SODIUM [Concomitant]
  5. LISINOPRIL [Concomitant]
  6. NITROGLYCERIN [Concomitant]
  7. PLAVIX [Concomitant]
  8. SELOKEEN [Concomitant]

REACTIONS (2)
  - CATHETER RELATED COMPLICATION [None]
  - THROMBOSIS [None]
